FAERS Safety Report 8079495-0 (Version None)
Quarter: 2012Q1

REPORT INFORMATION
  Report Type: 
  Country: None (occurrence: None)
  Receive Date: 20120124
  Receipt Date: 20120111
  Transmission Date: 20120608
  Serious: Yes (Hospitalization)
  Sender: FDA-Public Use
  Company Number: 2012HGS-003126

PATIENT
  Age: 43 Year
  Sex: Female
  Weight: 92.9874 kg

DRUGS (22)
  1. NISEDIAC (NIFEDIPINE) (NIFEDIPINE) [Concomitant]
  2. PRENATAL VITAMINS (PRENATAL VITAMINS /01549301/) (ASCORBIC ACID, BIOTI [Concomitant]
  3. PREVACID (LANSOPRAZOLE) (LANSOPRAZOLE) [Concomitant]
  4. BENLYSTA [Suspect]
     Indication: SYSTEMIC LUPUS ERYTHEMATOSUS
     Dosage: 10 MG/KG, 1 IN 4 WK, INTRAVENOUS DRIP
     Route: 041
     Dates: start: 20111005
  5. XANAX [Concomitant]
  6. TRILEPTAL (OXCARBAZEPINE) (OXCARBAZEPINE) [Concomitant]
  7. FOLIC ACID [Concomitant]
  8. RANITIDINE [Concomitant]
  9. LUNESTA (ESZOPICLONE) (ESZOPICLONE) [Concomitant]
  10. KLONOPIN [Concomitant]
  11. METHOTREXATE [Concomitant]
  12. BIOIDENTICAL HORMONES (HORMONES) (HORMONES) [Concomitant]
  13. PREDNISONE [Concomitant]
  14. NEURONTIN [Concomitant]
  15. OMNARIS (CICLESONIDE) (CICLESONIDE) [Concomitant]
  16. PLAQUENIL (HYDROXYCHLOROQUINE SULFATE) (HYDROCYCHLOROQUINE SULFATE) [Concomitant]
  17. SPIRONOLACTONE [Concomitant]
  18. PILOCARPINE (PILOCARPINE) (PILOCARPINE) [Concomitant]
  19. VALTREX (VALACICLOVIR HYDROCHLORIDE) (VALACICLOVIR HYDROCHLORIDE) [Concomitant]
  20. TYLENOL ARTHRITIS (PARACETAMOL) (PARACETAMOL) [Concomitant]
  21. VITAMIN D (ERGOCALCIFEROL) (ERGOCALCIFEROL) [Concomitant]
  22. B12 SHOT (CYANOCOBALAMIN) (CYANOCOBALAMIN) [Concomitant]

REACTIONS (11)
  - THROAT IRRITATION [None]
  - RASH ERYTHEMATOUS [None]
  - PLEURISY [None]
  - OROPHARYNGEAL PAIN [None]
  - NASAL CONGESTION [None]
  - INFLUENZA LIKE ILLNESS [None]
  - WALKING AID USER [None]
  - INFUSION RELATED REACTION [None]
  - ANXIETY [None]
  - PAIN IN EXTREMITY [None]
  - SINUSITIS [None]
